FAERS Safety Report 12602367 (Version 1)
Quarter: 2016Q3

REPORT INFORMATION
  Report Type: Spontaneous
  Country: US (occurrence: US)
  Receive Date: 20160728
  Receipt Date: 20160728
  Transmission Date: 20161109
  Serious: No
  Sender: FDA-Public Use
  Company Number: US-PFIZER INC-2016364455

PATIENT
  Sex: Female

DRUGS (1)
  1. LYRICA [Suspect]
     Active Substance: PREGABALIN
     Dosage: 75 MG, UNK

REACTIONS (10)
  - Arthralgia [Unknown]
  - Musculoskeletal stiffness [Unknown]
  - Breast pain [Unknown]
  - Pain [Unknown]
  - Axillary pain [Unknown]
  - Panic attack [Unknown]
  - Dysaesthesia [Unknown]
  - Breast enlargement [Unknown]
  - Abdominal pain [Unknown]
  - Feeling hot [Unknown]
